FAERS Safety Report 8005694-X (Version None)
Quarter: 2011Q4

REPORT INFORMATION
  Report Type: 
  Country: None (occurrence: None)
  Receive Date: 20111223
  Receipt Date: 20111221
  Transmission Date: 20120403
  Serious: Yes (Other)
  Sender: FDA-Public Use
  Company Number: BR-ROCHE-1024389

PATIENT
  Sex: Male
  Weight: 68 kg

DRUGS (7)
  1. OLMESARTAN MEDOXOMIL [Concomitant]
  2. MABTHERA [Suspect]
     Indication: PRODUCT USED FOR UNKNOWN INDICATION
     Route: 042
     Dates: start: 20110101, end: 20111001
  3. EFFIENT [Concomitant]
  4. PRELONE [Concomitant]
  5. FOLIC ACID [Concomitant]
  6. METHOTREXATE [Concomitant]
  7. SEDATIVE [Concomitant]

REACTIONS (3)
  - CHEST DISCOMFORT [None]
  - WEIGHT DECREASED [None]
  - HYPERTENSION [None]
